FAERS Safety Report 4509076-4 (Version None)
Quarter: 2004Q4

REPORT INFORMATION
  Report Type: 
  Country: None (occurrence: None)
  Receive Date: 20041025
  Receipt Date: 20040723
  Transmission Date: 20050328
  Serious: Yes (Hospitalization)
  Sender: FDA-Public Use
  Company Number: US-JNJFOC-20040706483

PATIENT
  Age: 84 Year
  Sex: Female

DRUGS (17)
  1. INFLIXIMAB (INFLIXIMAB, RECOMBINANT) LYOPHILIZED POWDER [Suspect]
     Indication: RHEUMATOID ARTHRITIS
     Dosage: INTRAVENOUS
     Route: 042
     Dates: start: 20010228, end: 20030701
  2. METHOTREXATE [Concomitant]
  3. PREDNISONE [Concomitant]
  4. AMBEIN (ZOLPIDEM TARTRATE) [Concomitant]
  5. MIACALCIN [Concomitant]
  6. COUMADIN [Concomitant]
  7. FOLIC ACID [Concomitant]
  8. MICARDIS [Concomitant]
  9. MULTIVITAMIN (MULTIVITAMIN) [Concomitant]
  10. POTASSIUM (POTASSIUM) [Concomitant]
  11. LIPITOR [Concomitant]
  12. RANITIDINE [Concomitant]
  13. FUROSEMIDE [Concomitant]
  14. METOPROLOL TARTRATE [Concomitant]
  15. AMIODARONE HCL [Concomitant]
  16. ACTONEL [Concomitant]
  17. CALCIUM D (CALCIUM WITH VITAMIN D) [Concomitant]

REACTIONS (1)
  - NEPHROLITHIASIS [None]
